FAERS Safety Report 9778223 (Version 1)
Quarter: 2013Q4

REPORT INFORMATION
  Report Type: Spontaneous
  Country: DE (occurrence: DE)
  Receive Date: 20131223
  Receipt Date: 20131223
  Transmission Date: 20140711
  Serious: Yes (Congenital Anomaly)
  Sender: FDA-Public Use
  Company Number: GXKR2013DE003845

PATIENT
  Age: 1 Day
  Sex: Male
  Weight: 2.61 kg

DRUGS (1)
  1. TACROLIMUS [Suspect]
     Dosage: MATERNAL DOSE (0.-36.5 GESTATIONAL WEEK): 5 [MG/D]
     Route: 064

REACTIONS (2)
  - Ureteric stenosis [Not Recovered/Not Resolved]
  - Pyelocaliectasis [Not Recovered/Not Resolved]
